FAERS Safety Report 7179900-8 (Version None)
Quarter: 2010Q4

REPORT INFORMATION
  Report Type: 
  Country: None (occurrence: None)
  Receive Date: 20101221
  Receipt Date: 20101215
  Transmission Date: 20110411
  Serious: Yes (Life-Threatening, Hospitalization, Other)
  Sender: FDA-Public Use
  Company Number: PHHO2010DK13673

PATIENT
  Sex: Female
  Weight: 54 kg

DRUGS (11)
  1. LCZ696 [Suspect]
     Indication: CARDIAC FAILURE CHRONIC
     Dosage: LEVEL 2
     Route: 048
     Dates: start: 20100826, end: 20100907
  2. COMPARATOR ENALAPRIL [Suspect]
     Indication: CARDIAC FAILURE CHRONIC
     Dosage: UNK
     Route: 048
     Dates: start: 20100812, end: 20100824
  3. ENALAPRIL MALEATE [Suspect]
     Indication: CARDIAC FAILURE CHRONIC
     Dosage: NO TREATMENT
     Route: 048
  4. BLINDED LCZ696 LCZ+TAB+CF [Suspect]
     Indication: CARDIAC FAILURE CHRONIC
     Dosage: NO TREATMENT
     Route: 048
  5. BLINDED NO TREATMENT RECEIVED NOMED [Suspect]
     Indication: CARDIAC FAILURE CHRONIC
     Dosage: NO TREATMENT
     Route: 048
  6. MAREVAN [Concomitant]
  7. DIGOXIN [Concomitant]
  8. DIMITONE [Concomitant]
     Indication: CARDIAC FAILURE
  9. FURIX [Concomitant]
     Indication: CARDIAC FAILURE
  10. SPIRON [Concomitant]
     Indication: CARDIAC FAILURE
  11. MAREVAN [Concomitant]
     Indication: ATRIAL FIBRILLATION

REACTIONS (19)
  - ATELECTASIS [None]
  - BREAST CANCER RECURRENT [None]
  - CARDIAC FAILURE [None]
  - CONDITION AGGRAVATED [None]
  - DYSPNOEA [None]
  - FATIGUE [None]
  - MEDIASTINAL MASS [None]
  - METASTASES TO ADRENALS [None]
  - METASTASES TO LIVER [None]
  - METASTASES TO LUNG [None]
  - METASTASES TO LYMPH NODES [None]
  - METASTASES TO PLEURA [None]
  - METASTASES TO THE MEDIASTINUM [None]
  - PLEURAL EFFUSION [None]
  - PNEUMONIA [None]
  - PNEUMOTHORAX [None]
  - PRODUCTIVE COUGH [None]
  - THORACIC CAVITY DRAINAGE [None]
  - VOMITING [None]
